FAERS Safety Report 6106967-8 (Version None)
Quarter: 2009Q1

REPORT INFORMATION
  Report Type: 
  Country: None (occurrence: None)
  Receive Date: 20090306
  Receipt Date: 20090306
  Transmission Date: 20090719
  Serious: Yes (Other)
  Sender: FDA-Public Use
  Company Number: None

PATIENT
  Sex: Female
  Weight: 74.8435 kg

DRUGS (2)
  1. ACTONEL [Suspect]
     Indication: OSTEOPENIA
     Dosage: 150 MG 1X/MONTH PO
     Route: 048
     Dates: start: 20081027
  2. ACTONEL [Suspect]
     Indication: OSTEOPENIA
     Dosage: 150 MG 1X/MONTH PO
     Route: 048
     Dates: start: 20081127

REACTIONS (10)
  - ARTHRALGIA [None]
  - CHOKING SENSATION [None]
  - DYSPNOEA [None]
  - FLATULENCE [None]
  - JOINT RANGE OF MOTION DECREASED [None]
  - MUSCULOSKELETAL CHEST PAIN [None]
  - MUSCULOSKELETAL PAIN [None]
  - NECK PAIN [None]
  - PAIN IN JAW [None]
  - URINE ODOUR ABNORMAL [None]
